FAERS Safety Report 22810292 (Version 3)
Quarter: 2023Q4

REPORT INFORMATION
  Report Type: Spontaneous
  Country: US (occurrence: US)
  Receive Date: 20230810
  Receipt Date: 20231115
  Transmission Date: 20240109
  Serious: No
  Sender: FDA-Public Use
  Company Number: US-PFIZER INC-202300271996

PATIENT
  Age: 46 Year
  Sex: Female
  Weight: 81.65 kg

DRUGS (9)
  1. ESTROGENS, CONJUGATED [Suspect]
     Active Substance: ESTROGENS, CONJUGATED
     Dosage: UNK
  2. ESTRADIOL [Suspect]
     Active Substance: ESTRADIOL
     Dosage: UNK
  3. ZERODOL [ACECLOFENAC] [Concomitant]
     Dosage: 1 TO 4 PER DAY DEPENDING ON HOW MUCH TROUBLE THE BLADDER IS HAVING
  4. ZITROL [Concomitant]
     Indication: Mast cell activation syndrome
     Dosage: UNK
  5. LORATADINE [Concomitant]
     Active Substance: LORATADINE
     Indication: Mast cell activation syndrome
     Dosage: 40 MG TWICE A DAY, 1 TO 2 A DAY DEPENDING ON THE DAY
  6. HYDROXYZINE [Concomitant]
     Active Substance: HYDROXYZINE HYDROCHLORIDE
     Indication: Cystitis interstitial
     Dosage: UNK
  7. SORBITOL [Concomitant]
     Active Substance: SORBITOL
     Dosage: UNK
  8. SORBITOL [Concomitant]
     Active Substance: SORBITOL
     Dosage: UNK
  9. SINGULAIR [Concomitant]
     Active Substance: MONTELUKAST SODIUM
     Indication: Mast cell activation syndrome
     Dosage: ONCE A DAY

REACTIONS (1)
  - Drug ineffective [Unknown]
